FAERS Safety Report 9070950 (Version 1)
Quarter: 2013Q1

REPORT INFORMATION
  Report Type: Spontaneous
  Country: JP (occurrence: JP)
  Receive Date: 20130129
  Receipt Date: 20130129
  Transmission Date: 20140127
  Serious: Yes (Other)
  Sender: FDA-Public Use
  Company Number: JP-GLAXOSMITHKLINE-B0858092A

PATIENT
  Age: 44 None
  Sex: Male

DRUGS (4)
  1. RELENZA [Suspect]
     Indication: INFLUENZA
     Dosage: 2IUAX TWICE PER DAY
     Route: 055
     Dates: start: 20130108, end: 20130112
  2. QVAR [Concomitant]
     Indication: ASTHMA
     Dosage: 2IUAX TWICE PER DAY
     Route: 055
     Dates: start: 20030825
  3. KETOTIFEN FUMARATE [Concomitant]
     Indication: RHINITIS ALLERGIC
     Dosage: 1IUAX TWICE PER DAY
     Route: 045
     Dates: start: 20030825
  4. MEPTIN AIR [Concomitant]
     Indication: ASTHMA
     Route: 055
     Dates: start: 20030825

REACTIONS (2)
  - Loss of consciousness [Recovered/Resolved]
  - Syncope [Recovered/Resolved]
